FAERS Safety Report 7609790-8 (Version None)
Quarter: 2011Q3

REPORT INFORMATION
  Report Type: 
  Country: None (occurrence: None)
  Receive Date: 20110714
  Receipt Date: 20110706
  Transmission Date: 20111222
  Serious: Yes (Hospitalization, Other)
  Sender: FDA-Public Use
  Company Number: US-MILLENNIUM PHARMACEUTICALS, INC.-2011-02781

PATIENT

DRUGS (2)
  1. VELCADE [Suspect]
     Indication: MULTIPLE MYELOMA
     Dosage: UNK
     Route: 042
     Dates: start: 20110101
  2. METOPROLOL TARTRATE [Concomitant]
     Indication: ARRHYTHMIA

REACTIONS (8)
  - NAUSEA [None]
  - DRUG ADMINISTRATION ERROR [None]
  - DIARRHOEA [None]
  - PRURITUS [None]
  - ARRHYTHMIA [None]
  - VOMITING [None]
  - DEHYDRATION [None]
  - URTICARIA [None]
